FAERS Safety Report 21238872 (Version 1)
Quarter: 2022Q3

REPORT INFORMATION
  Report Type: Spontaneous
  Country: JP (occurrence: JP)
  Receive Date: 20220822
  Receipt Date: 20220822
  Transmission Date: 20221027
  Serious: Yes (Hospitalization, Other)
  Sender: FDA-Public Use
  Company Number: JP-MEDEXUS PHARMA, INC.-2022MED00351

PATIENT
  Age: 69 Year
  Sex: Male

DRUGS (8)
  1. METHOTREXATE [Suspect]
     Active Substance: METHOTREXATE
     Indication: Acute myeloid leukaemia
     Dosage: 15 MG INDUCTION THERAPY
     Route: 037
  2. METHOTREXATE [Suspect]
     Active Substance: METHOTREXATE
     Dosage: 15 MG CONSOLIDATION THERAPY
     Route: 037
  3. METHOTREXATE [Suspect]
     Active Substance: METHOTREXATE
     Dosage: 15 MG CONSOLIDATION THERAPY
     Route: 037
  4. CYTARABINE [Suspect]
     Active Substance: CYTARABINE
     Indication: Acute myeloid leukaemia
     Dosage: 40 MG INDUCTION THERAPY
     Route: 037
  5. CYTARABINE [Suspect]
     Active Substance: CYTARABINE
     Dosage: 80 MG/M2 INDUCTION THERAPY
     Route: 065
  6. CYTARABINE [Suspect]
     Active Substance: CYTARABINE
     Dosage: 40 MG CONSOLIDATON THERAPY
     Route: 037
  7. CYTARABINE [Suspect]
     Active Substance: CYTARABINE
     Dosage: 40 MG CONSOLIDATION THERAPY
     Route: 037
  8. DAUNORUBICIN [Concomitant]
     Active Substance: DAUNORUBICIN
     Indication: Acute myeloid leukaemia
     Dosage: 40 MG/M2 INDUCTION THERAPY
     Route: 065

REACTIONS (4)
  - Radiation myelopathy [Recovered/Resolved with Sequelae]
  - Bladder dysfunction [Recovered/Resolved with Sequelae]
  - Functional gastrointestinal disorder [Recovered/Resolved with Sequelae]
  - Paraplegia [Recovered/Resolved with Sequelae]
